FAERS Safety Report 5320205-5 (Version None)
Quarter: 2007Q2

REPORT INFORMATION
  Report Type: 
  Country: None (occurrence: None)
  Receive Date: 20070509
  Receipt Date: 20070507
  Transmission Date: 20071010
  Serious: Yes (Hospitalization)
  Sender: FDA-Public Use
  Company Number: A0650020A

PATIENT
  Sex: Female

DRUGS (2)
  1. FLOVENT [Suspect]
     Indication: DRUG USE FOR UNKNOWN INDICATION
     Route: 065
  2. BRONCHODILATOR UNSPECIFIED [Suspect]

REACTIONS (3)
  - COUGH [None]
  - HEART RATE INCREASED [None]
  - RHINORRHOEA [None]
